FAERS Safety Report 17893521 (Version 2)
Quarter: 2020Q2

REPORT INFORMATION
  Report Type: Spontaneous
  Country: GB (occurrence: GB)
  Receive Date: 20200615
  Receipt Date: 20200627
  Transmission Date: 20200714
  Serious: Yes (Hospitalization, Other)
  Sender: FDA-Public Use
  Company Number: GB-ACCORD-183864

PATIENT
  Age: 38 Year
  Sex: Male
  Weight: 123 kg

DRUGS (1)
  1. CLOZAPINE. [Suspect]
     Active Substance: CLOZAPINE
     Indication: PSYCHOTIC SYMPTOM

REACTIONS (7)
  - Somnolence [Recovered/Resolved]
  - Drug level increased [Recovered/Resolved]
  - Cough [Recovered/Resolved]
  - Salivary hypersecretion [Unknown]
  - Myoclonus [Recovered/Resolved]
  - Headache [Unknown]
  - Oxygen saturation decreased [Unknown]

NARRATIVE: CASE EVENT DATE: 20200530
